FAERS Safety Report 10291779 (Version 2)
Quarter: 2014Q3

REPORT INFORMATION
  Report Type: Spontaneous
  Country: US (occurrence: US)
  Receive Date: 20140710
  Receipt Date: 20140710
  Transmission Date: 20150326
  Serious: No
  Sender: FDA-Public Use
  Company Number: US-PURDUE-USA-2013-0106208

PATIENT
  Age: 59 Year
  Sex: Male
  Weight: 112.47 kg

DRUGS (1)
  1. BUTRANS [Suspect]
     Active Substance: BUPRENORPHINE
     Indication: SPINAL OSTEOARTHRITIS
     Dosage: 5 MCG/HR, WEEKLY
     Route: 062
     Dates: start: 20130808, end: 20130820

REACTIONS (1)
  - Drug effect increased [Recovered/Resolved]

NARRATIVE: CASE EVENT DATE: 20130812
